FAERS Safety Report 10626048 (Version 2)
Quarter: 2015Q1

REPORT INFORMATION
  Report Type: Spontaneous
  Country: US (occurrence: US)
  Receive Date: 20141204
  Receipt Date: 20150105
  Transmission Date: 20150720
  Serious: Yes (Hospitalization, Other)
  Sender: FDA-Public Use
  Company Number: US-009507513-1412USA001467

PATIENT
  Sex: Female

DRUGS (2)
  1. INVANZ [Suspect]
     Active Substance: ERTAPENEM SODIUM
     Indication: ABDOMINAL INFECTION
     Dosage: 1 MG, QD
     Route: 042
  2. INVANZ [Suspect]
     Active Substance: ERTAPENEM SODIUM
     Dosage: UNK

REACTIONS (5)
  - Coma [Recovering/Resolving]
  - Infection [Unknown]
  - Pyrexia [Unknown]
  - Dizziness [Unknown]
  - Syncope [Recovering/Resolving]
